FAERS Safety Report 4460093-2 (Version None)
Quarter: 2004Q3

REPORT INFORMATION
  Report Type: 
  Country: None (occurrence: None)
  Receive Date: 20040928
  Receipt Date: 20031205
  Transmission Date: 20050211
  Serious: No
  Sender: FDA-Public Use
  Company Number: US-GLAXOSMITHKLINE-A0442177A

PATIENT
  Age: 76 Year
  Sex: Female

DRUGS (7)
  1. SEREVENT [Suspect]
     Indication: ASTHMA
     Dosage: 1PUFF TWICE PER DAY
     Route: 055
     Dates: start: 20031011, end: 20031204
  2. FLOVENT [Concomitant]
  3. LIPITOR [Concomitant]
  4. DYAZIDE [Concomitant]
  5. RYTHMOL [Concomitant]
  6. DIGITEK [Concomitant]
  7. ALBUTEROL [Concomitant]

REACTIONS (4)
  - ASTHMA [None]
  - CHOKING SENSATION [None]
  - PHARYNGOLARYNGEAL PAIN [None]
  - PNEUMONIA [None]
